FAERS Safety Report 9544239 (Version 1)
Quarter: 2013Q3

REPORT INFORMATION
  Report Type: Spontaneous
  Country: BR (occurrence: BR)
  Receive Date: 20130923
  Receipt Date: 20130923
  Transmission Date: 20140515
  Serious: Yes (Other)
  Sender: FDA-Public Use
  Company Number: BR-009507513-1302BRA005078

PATIENT
  Age: 33 Year
  Sex: Female
  Weight: 55 kg

DRUGS (1)
  1. MERCILON [Suspect]
     Dosage: UNK, UNKNOWN
     Route: 048
     Dates: start: 1999, end: 201110

REACTIONS (1)
  - Caesarean section [Recovered/Resolved]
